FAERS Safety Report 13916964 (Version 1)
Quarter: 2017Q3

REPORT INFORMATION
  Report Type: Spontaneous
  Country: FR (occurrence: FR)
  Receive Date: 20170829
  Receipt Date: 20170829
  Transmission Date: 20171127
  Serious: Yes (Hospitalization, Other)
  Sender: FDA-Public Use
  Company Number: FR-PFIZER INC-2017368298

PATIENT
  Age: 49 Year
  Sex: Male

DRUGS (5)
  1. ZYVOXID [Suspect]
     Active Substance: LINEZOLID
     Indication: ERYSIPELAS
     Dosage: 600 MG, 2X/DAY
     Route: 048
     Dates: start: 20170728, end: 20170730
  2. CLINDAMYCIN. [Concomitant]
     Active Substance: CLINDAMYCIN
     Indication: ERYSIPELAS
     Dosage: 600 MG, SINGLE
     Route: 042
     Dates: start: 20170728, end: 20170728
  3. ADENURIC [Concomitant]
     Active Substance: FEBUXOSTAT
     Indication: HYPERURICAEMIA
     Dosage: 80 MG, 1X/DAY
     Route: 048
     Dates: start: 201706, end: 20170804
  4. LERCAN [Suspect]
     Active Substance: LERCANIDIPINE
     Indication: HYPERTENSION
     Dosage: 10 MG, DAILY
     Route: 048
     Dates: start: 20170729, end: 20170804
  5. PYOSTACINE [Concomitant]
     Active Substance: PRISTINAMYCIN
     Indication: ERYSIPELAS
     Dosage: UNK
     Route: 048
     Dates: start: 20170725, end: 20170728

REACTIONS (2)
  - Acute kidney injury [Unknown]
  - Acute generalised exanthematous pustulosis [Recovered/Resolved]

NARRATIVE: CASE EVENT DATE: 20170730
